FAERS Safety Report 9921098 (Version 9)
Quarter: 2015Q4

REPORT INFORMATION
  Report Type: Report from Study
  Country: BR (occurrence: BR)
  Receive Date: 20140225
  Receipt Date: 20151215
  Transmission Date: 20160305
  Serious: Yes (Other)
  Sender: FDA-Public Use
  Company Number: BR-ROCHE-1354890

PATIENT
  Sex: Female
  Weight: 80 kg

DRUGS (9)
  1. ARADOIS [Concomitant]
     Active Substance: LOSARTAN POTASSIUM
     Route: 065
     Dates: start: 201410
  2. XOLAIR [Suspect]
     Active Substance: OMALIZUMAB
     Route: 058
  3. ARCOXIA [Concomitant]
     Active Substance: ETORICOXIB
     Route: 065
  4. XOLAIR [Suspect]
     Active Substance: OMALIZUMAB
     Route: 058
  5. CIMZIA [Concomitant]
     Active Substance: CERTOLIZUMAB PEGOL
     Indication: DYSPNOEA
     Route: 065
     Dates: start: 20131111
  6. FORASEQ [Concomitant]
     Active Substance: BUDESONIDE\FORMOTEROL FUMARATE
     Indication: DYSPNOEA
  7. SERETIDE [Concomitant]
     Active Substance: FLUTICASONE FUROATE\SALMETEROL XINAFOATE
     Route: 065
  8. XOLAIR [Suspect]
     Active Substance: OMALIZUMAB
     Indication: ASTHMA
     Dosage: 2 AMPOULES ONCE A MONTH
     Route: 058
     Dates: start: 201306
  9. XOLAIR [Suspect]
     Active Substance: OMALIZUMAB
     Route: 058

REACTIONS (18)
  - Fatigue [Not Recovered/Not Resolved]
  - Insomnia [Recovered/Resolved]
  - Wheezing [Unknown]
  - Poor quality sleep [Recovering/Resolving]
  - Middle insomnia [Recovering/Resolving]
  - Immunodeficiency [Recovering/Resolving]
  - Fall [Unknown]
  - Sneezing [Unknown]
  - Nightmare [Recovered/Resolved]
  - Agitation [Recovered/Resolved]
  - Memory impairment [Unknown]
  - Somnolence [Not Recovered/Not Resolved]
  - Bone pain [Recovering/Resolving]
  - Sluggishness [Recovering/Resolving]
  - Malaise [Recovering/Resolving]
  - Psoriatic arthropathy [Unknown]
  - Influenza [Recovering/Resolving]
  - Viral infection [Unknown]
